FAERS Safety Report 9263752 (Version 1)
Quarter: 2013Q2

REPORT INFORMATION
  Report Type: Report from Study
  Country: US (occurrence: US)
  Receive Date: 20130430
  Receipt Date: 20130430
  Transmission Date: 20140414
  Serious: Yes (Hospitalization, Other)
  Sender: FDA-Public Use
  Company Number: PHEH2013US009416

PATIENT
  Sex: Female
  Weight: 74.38 kg

DRUGS (1)
  1. GILENYA [Suspect]
     Indication: MULTIPLE SCLEROSIS
     Dosage: 0.5 MG, QD
     Route: 048
     Dates: start: 20110211

REACTIONS (5)
  - Renal failure [Recovering/Resolving]
  - Oedema [Recovering/Resolving]
  - Blood pressure increased [Recovering/Resolving]
  - Renal artery stenosis [Recovering/Resolving]
  - Cardiac valve rupture [Recovering/Resolving]
